FAERS Safety Report 5107303-6 (Version None)
Quarter: 2006Q4

REPORT INFORMATION
  Report Type: 
  Country: None (occurrence: None)
  Receive Date: 20060912
  Receipt Date: 20060831
  Transmission Date: 20070319
  Serious: Yes (Hospitalization, Other)
  Sender: FDA-Public Use
  Company Number: HQWYE236301SEP06

PATIENT
  Age: 86 Year
  Sex: Female

DRUGS (2)
  1. PANTOPRAZOLE SODIUM [Suspect]
     Indication: DUODENITIS
     Dosage: 40 MG 1 X PER 1 DAY
     Route: 048
     Dates: start: 20060405, end: 20060412
  2. PANTOPRAZOLE SODIUM [Suspect]
     Indication: GASTRITIS
     Dosage: 40 MG 1 X PER 1 DAY
     Route: 048
     Dates: start: 20060405, end: 20060412

REACTIONS (4)
  - AGRANULOCYTOSIS [None]
  - NEUTROPENIA [None]
  - PSEUDOMONAS INFECTION [None]
  - WOUND INFECTION PSEUDOMONAS [None]
